FAERS Safety Report 25470389 (Version 1)
Quarter: 2025Q2

REPORT INFORMATION
  Report Type: Spontaneous
  Country: DE (occurrence: DE)
  Receive Date: 20250624
  Receipt Date: 20250624
  Transmission Date: 20250717
  Serious: No
  Sender: ALKEM
  Company Number: DE-ALKEM LABORATORIES LIMITED-DE-ALKEM-2025-04583

PATIENT
  Age: 50 Year
  Sex: Male
  Weight: 70 kg

DRUGS (10)
  1. AMLODIPINE BESYLATE [Suspect]
     Active Substance: AMLODIPINE BESYLATE
     Indication: Product used for unknown indication
     Route: 048
  2. ATORVASTATIN CALCIUM [Suspect]
     Active Substance: ATORVASTATIN CALCIUM
     Indication: Product used for unknown indication
     Route: 065
  3. EZETIMIBE [Suspect]
     Active Substance: EZETIMIBE
     Indication: Product used for unknown indication
     Route: 048
  4. ROSUVASTATIN [Suspect]
     Active Substance: ROSUVASTATIN
     Indication: Product used for unknown indication
     Route: 048
  5. FENOFIBRATE [Suspect]
     Active Substance: FENOFIBRATE
     Indication: Product used for unknown indication
     Route: 065
  6. LEQVIO [Suspect]
     Active Substance: INCLISIRAN SODIUM
     Indication: Coronary artery disease
     Route: 058
  7. LEQVIO [Suspect]
     Active Substance: INCLISIRAN SODIUM
     Indication: Haemophagocytic lymphohistiocytosis
  8. PRAVASTATIN [Suspect]
     Active Substance: PRAVASTATIN
     Indication: Product used for unknown indication
     Route: 048
  9. SIMVASTATIN [Suspect]
     Active Substance: SIMVASTATIN
     Indication: Product used for unknown indication
     Route: 048
  10. ASPIRIN [Concomitant]
     Active Substance: ASPIRIN
     Indication: Product used for unknown indication
     Dosage: 100 MILLIGRAM, QD
     Route: 065

REACTIONS (15)
  - Drug intolerance [Unknown]
  - Drug intolerance [Recovered/Resolved]
  - Drug intolerance [Recovered/Resolved]
  - Discomfort [Recovered/Resolved]
  - Blood triglycerides increased [Recovered/Resolved]
  - General physical health deterioration [Not Recovered/Not Resolved]
  - Low density lipoprotein [Not Recovered/Not Resolved]
  - Platelet count increased [Recovered/Resolved]
  - High density lipoprotein abnormal [Unknown]
  - Drug therapeutic incompatibility [Unknown]
  - Drug therapeutic incompatibility [Unknown]
  - Drug therapeutic incompatibility [Unknown]
  - Drug therapeutic incompatibility [Unknown]
  - Malaise [Unknown]
  - Myalgia [Recovered/Resolved]

NARRATIVE: CASE EVENT DATE: 20200501
